FAERS Safety Report 25469193 (Version 2)
Quarter: 2025Q3

REPORT INFORMATION
  Report Type: Report from Study
  Country: KR (occurrence: KR)
  Receive Date: 20250623
  Receipt Date: 20250728
  Transmission Date: 20251020
  Serious: Yes (Hospitalization)
  Sender: TAKEDA
  Company Number: KR-TAKEDA-2025TUS056580

PATIENT
  Age: 56 Year
  Sex: Male

DRUGS (1)
  1. COAGULATION FACTOR IX RECOMBINANT HUMAN [Suspect]
     Active Substance: COAGULATION FACTOR IX RECOMBINANT HUMAN
     Indication: Factor IX deficiency

REACTIONS (1)
  - Haematoma [Recovered/Resolved]
